FAERS Safety Report 5054737-4 (Version None)
Quarter: 2006Q2

REPORT INFORMATION
  Report Type: 
  Country: None (occurrence: None)
  Receive Date: 20060614
  Receipt Date: 20060111
  Transmission Date: 20061013
  Serious: No
  Sender: FDA-Public Use
  Company Number: US200601000682

PATIENT
  Age: 61 Year
  Sex: Male

DRUGS (9)
  1. CIALIS [Suspect]
     Indication: ERECTILE DYSFUNCTION
     Dosage: SEE IMAGE
     Dates: start: 20051231, end: 20051231
  2. CIALIS [Suspect]
     Indication: ERECTILE DYSFUNCTION
     Dosage: SEE IMAGE
     Dates: start: 20050701
  3. CIALIS [Suspect]
     Indication: ERECTILE DYSFUNCTION
     Dosage: SEE IMAGE
     Dates: start: 20060103
  4. CIALIS [Suspect]
     Indication: ERECTILE DYSFUNCTION
     Dosage: SEE IMAGE
     Dates: start: 20060110
  5. METAMUCIL (GLUCOSE MONOHYDRATE, ISPAGHULA  HUSK) [Concomitant]
  6. COUMADIN [Concomitant]
  7. LIPITOR [Concomitant]
  8. TRICOR (FENIFIBRATE) [Concomitant]
  9. MIRALAX [Concomitant]

REACTIONS (2)
  - DIARRHOEA [None]
  - GASTROINTESTINAL DISORDER [None]
